FAERS Safety Report 8168645-3 (Version None)
Quarter: 2012Q1

REPORT INFORMATION
  Report Type: 
  Country: None (occurrence: None)
  Receive Date: 20120227
  Receipt Date: 20120221
  Transmission Date: 20120608
  Serious: Yes (Hospitalization, Other)
  Sender: FDA-Public Use
  Company Number: US-AMGEN-USASP2011034735

PATIENT
  Age: 59 Year
  Sex: Female

DRUGS (3)
  1. ENBREL [Suspect]
     Indication: RHEUMATOID ARTHRITIS
     Dosage: 50 MG, QWK
     Dates: start: 20100402, end: 20111101
  2. HUMIRA [Concomitant]
     Dosage: UNK
     Dates: start: 20101101
  3. ENBREL [Suspect]
     Indication: FIBROMYALGIA
     Dosage: 50 MG, QWK
     Dates: start: 20100402, end: 20101101

REACTIONS (3)
  - CORNEAL INFECTION [None]
  - JOINT DESTRUCTION [None]
  - ARTHRALGIA [None]
